FAERS Safety Report 9089546 (Version 1)
Quarter: 2013Q1

REPORT INFORMATION
  Report Type: Spontaneous
  Country: US (occurrence: US)
  Receive Date: 20130201
  Receipt Date: 20130201
  Transmission Date: 20140127
  Serious: No
  Sender: FDA-Public Use
  Company Number: US-GALDERMA-US-GDP-12415332

PATIENT
  Sex: Female

DRUGS (2)
  1. EPIDUO (ADAPALENE) [Suspect]
     Indication: ACNE
     Route: 061
     Dates: start: 2012
  2. LANCOME ABSOLUE PRECIOUS CELLS ADVANCED REGENERATING AND RECONSTRUCTING CREAM SPF 15 SUNSCREEN [Concomitant]
     Indication: THERAPEUTIC SKIN CARE TOPICAL
     Route: 061

REACTIONS (1)
  - Dry skin [Unknown]
